FAERS Safety Report 17044003 (Version 1)
Quarter: 2019Q4

REPORT INFORMATION
  Report Type: Report from Study
  Country: CR (occurrence: CR)
  Receive Date: 20191118
  Receipt Date: 20191118
  Transmission Date: 20200122
  Serious: Yes (Other)
  Sender: FDA-Public Use
  Company Number: PHHY2019CR225435

PATIENT
  Age: 83 Year
  Sex: Female

DRUGS (2)
  1. VYMADA [Suspect]
     Active Substance: SACUBITRIL\VALSARTAN
     Indication: PERIPHERAL SWELLING
     Dosage: 50 MG, UNK
     Route: 065
  2. VYMADA [Suspect]
     Active Substance: SACUBITRIL\VALSARTAN
     Indication: LIMB MASS

REACTIONS (8)
  - Hypoxia [Unknown]
  - Muscle spasms [Unknown]
  - Visual impairment [Unknown]
  - Vein disorder [Unknown]
  - Gait disturbance [Unknown]
  - Drug ineffective [Unknown]
  - Malaise [Unknown]
  - Product use in unapproved indication [Unknown]
